FAERS Safety Report 9452763 (Version 1)
Quarter: 2013Q3

REPORT INFORMATION
  Report Type: Spontaneous
  Country: US (occurrence: None)
  Receive Date: 20130808
  Receipt Date: 20130808
  Transmission Date: 20140515
  Serious: Yes (Life-Threatening)
  Sender: FDA-Public Use
  Company Number: None

PATIENT
  Age: 66 Year
  Sex: Male
  Weight: 91 kg

DRUGS (1)
  1. PIPERACILLIN/TAZOBACTAM [Suspect]
     Indication: OSTEOMYELITIS
     Route: 042
     Dates: start: 20130723, end: 20130804

REACTIONS (6)
  - Torsade de pointes [None]
  - Palpitations [None]
  - Leg amputation [None]
  - Ventricular fibrillation [None]
  - Ventricular fibrillation [None]
  - Fungal test positive [None]
